FAERS Safety Report 7334542-6 (Version None)
Quarter: 2011Q1

REPORT INFORMATION
  Report Type: 
  Country: None (occurrence: None)
  Receive Date: 20110307
  Receipt Date: 20110303
  Transmission Date: 20110831
  Serious: Yes (Hospitalization, Other)
  Sender: FDA-Public Use
  Company Number: AT-ABBOTT-11P-009-0706364-00

PATIENT
  Age: 36 Year
  Sex: Male

DRUGS (11)
  1. TOPAMAX [Suspect]
     Dosage: 100 MILLIGRAM DAILY
     Route: 048
     Dates: start: 20100111, end: 20100113
  2. TOPAMAX [Suspect]
     Dosage: 150 MILLIGRAM DAILY
     Route: 048
     Dates: start: 20100114, end: 20100117
  3. TOPAMAX [Suspect]
     Indication: PRODUCT USED FOR UNKNOWN INDICATION
     Dosage: 25 MILLIGRAM DAILY
     Route: 048
     Dates: start: 20100107, end: 20100108
  4. TOPAMAX [Suspect]
     Dosage: 25 MILLIGRAM DAILY
     Route: 048
     Dates: start: 20100126
  5. SEROQUEL [Suspect]
     Indication: PRODUCT USED FOR UNKNOWN INDICATION
     Route: 048
  6. DEPAKENE [Suspect]
     Indication: PRODUCT USED FOR UNKNOWN INDICATION
     Dosage: 2 GRAMS DAILY
     Dates: start: 20100111
  7. TOPAMAX [Suspect]
     Dosage: 50 MILLIGRAM DAILY
     Route: 048
     Dates: start: 20100121, end: 20100125
  8. QUILONORM [Suspect]
     Indication: PRODUCT USED FOR UNKNOWN INDICATION
     Route: 048
     Dates: start: 20100110
  9. QUILONORM [Suspect]
     Route: 048
     Dates: start: 20100111
  10. TOPAMAX [Suspect]
     Dosage: 50 MILLIGRAM DAILY
     Route: 048
     Dates: start: 20100109, end: 20100110
  11. TOPAMAX [Suspect]
     Dosage: 100 MILLIGRAM DAILY
     Route: 048
     Dates: start: 20100118, end: 20100120

REACTIONS (3)
  - COGNITIVE DISORDER [None]
  - MEMORY IMPAIRMENT [None]
  - DISTURBANCE IN ATTENTION [None]
